FAERS Safety Report 25261013 (Version 1)
Quarter: 2025Q2

REPORT INFORMATION
  Report Type: Spontaneous
  Country: DE (occurrence: DE)
  Receive Date: 20250501
  Receipt Date: 20250501
  Transmission Date: 20250717
  Serious: Yes (Other)
  Sender: MYLAN
  Company Number: DE-SANDOZ-SDZ2025DE023478

PATIENT
  Sex: Female

DRUGS (16)
  1. TAMOXIFEN [Suspect]
     Active Substance: TAMOXIFEN
     Indication: Product used for unknown indication
  2. TAMOXIFEN [Suspect]
     Active Substance: TAMOXIFEN
  3. TAMOXIFEN [Suspect]
     Active Substance: TAMOXIFEN
     Route: 065
  4. TAMOXIFEN [Suspect]
     Active Substance: TAMOXIFEN
     Route: 065
  5. TAMOXIFEN [Suspect]
     Active Substance: TAMOXIFEN
  6. TAMOXIFEN [Suspect]
     Active Substance: TAMOXIFEN
  7. TAMOXIFEN [Suspect]
     Active Substance: TAMOXIFEN
     Route: 065
  8. TAMOXIFEN [Suspect]
     Active Substance: TAMOXIFEN
     Route: 065
  9. FEMARA [Suspect]
     Active Substance: LETROZOLE
     Indication: Product used for unknown indication
  10. FEMARA [Suspect]
     Active Substance: LETROZOLE
  11. FEMARA [Suspect]
     Active Substance: LETROZOLE
     Route: 065
  12. FEMARA [Suspect]
     Active Substance: LETROZOLE
     Route: 065
  13. FEMARA [Suspect]
     Active Substance: LETROZOLE
  14. FEMARA [Suspect]
     Active Substance: LETROZOLE
  15. FEMARA [Suspect]
     Active Substance: LETROZOLE
     Route: 065
  16. FEMARA [Suspect]
     Active Substance: LETROZOLE
     Route: 065

REACTIONS (15)
  - Bedridden [Unknown]
  - Sleep disorder [Unknown]
  - Vomiting [Unknown]
  - Pyrexia [Unknown]
  - Faeces discoloured [Unknown]
  - Fluid intake reduced [Recovering/Resolving]
  - Urine flow decreased [Unknown]
  - Nightmare [Unknown]
  - Drug intolerance [Unknown]
  - Asthenia [Unknown]
  - Weight increased [Unknown]
  - Liver function test increased [Unknown]
  - Muscle spasms [Unknown]
  - Fatigue [Unknown]
  - Nausea [Unknown]
